FAERS Safety Report 25529922 (Version 1)
Quarter: 2025Q3

REPORT INFORMATION
  Report Type: Spontaneous
  Country: EU (occurrence: EU)
  Receive Date: 20250708
  Receipt Date: 20250708
  Transmission Date: 20251021
  Serious: Yes (Disabling, Other)
  Sender: PFIZER
  Company Number: None

PATIENT
  Sex: Female

DRUGS (1)
  1. CYTOTEC [Suspect]
     Active Substance: MISOPROSTOL
     Indication: Labour induction
     Route: 064
     Dates: start: 20191227, end: 20191227

REACTIONS (8)
  - Foetal exposure during pregnancy [Unknown]
  - Infantile spasms [Recovering/Resolving]
  - Disability [Not Recovered/Not Resolved]
  - Petit mal epilepsy [Unknown]
  - Oxygen saturation decreased [Recovered/Resolved with Sequelae]
  - Joint hyperextension [Recovering/Resolving]
  - Musculoskeletal stiffness [Recovering/Resolving]
  - Developmental delay [Not Recovered/Not Resolved]

NARRATIVE: CASE EVENT DATE: 20191227
